FAERS Safety Report 8058131-3 (Version None)
Quarter: 2012Q1

REPORT INFORMATION
  Report Type: 
  Country: None (occurrence: None)
  Receive Date: 20120113
  Receipt Date: 20120109
  Transmission Date: 20120608
  Serious: Yes (Death)
  Sender: FDA-Public Use
  Company Number: 2010SP026142

PATIENT
  Age: 45 Year
  Sex: Male
  Weight: 73.3 kg

DRUGS (19)
  1. DEXAMETHASONE [Concomitant]
  2. MEGESTROL ACETATE [Concomitant]
  3. DOMPERIDONE [Concomitant]
  4. RAMOSETRON [Concomitant]
  5. TRAMADOL HCL [Concomitant]
  6. TEMODAL [Suspect]
     Indication: GLIOBLASTOMA MULTIFORME
     Dosage: 140 MG;QD;PO, 300 MG;QD;PO
     Route: 048
     Dates: start: 20080923, end: 20081117
  7. TEMODAL [Suspect]
     Indication: GLIOBLASTOMA MULTIFORME
     Dosage: 140 MG;QD;PO, 300 MG;QD;PO
     Route: 048
     Dates: start: 20081213, end: 20081218
  8. TRIMETHOPRIM [Concomitant]
  9. IRBESARTAN [Concomitant]
  10. NORTRIPTYLINE HCL [Concomitant]
  11. CHOLINE ALFOSCERATE [Concomitant]
  12. CETIRIZINE [Concomitant]
  13. TOPIRAMATE [Concomitant]
  14. IBUPROFEN [Concomitant]
  15. LYRICA [Concomitant]
  16. PREDNISOLONE [Concomitant]
  17. AMLODIPINE BESYLATE [Concomitant]
  18. VALPROATE SODIUM [Concomitant]
  19. MAGNESIUM OXIDE [Concomitant]

REACTIONS (5)
  - BLOOD PRESSURE SYSTOLIC DECREASED [None]
  - GRAND MAL CONVULSION [None]
  - BLOOD GLUCOSE INCREASED [None]
  - CARDIO-RESPIRATORY ARREST [None]
  - METABOLIC ACIDOSIS [None]
